FAERS Safety Report 13357342 (Version 2)
Quarter: 2017Q2

REPORT INFORMATION
  Report Type: Report from Study
  Country: JP (occurrence: JP)
  Receive Date: 20170322
  Receipt Date: 20170405
  Transmission Date: 20170830
  Serious: Yes (Death, Other)
  Sender: FDA-Public Use
  Company Number: JP-ALXN-A201702509AA

PATIENT
  Age: 36 Year
  Sex: Male

DRUGS (1)
  1. SOLIRIS [Suspect]
     Active Substance: ECULIZUMAB
     Indication: HAEMOLYTIC URAEMIC SYNDROME
     Dosage: 900 UNK, DAILY
     Route: 042
     Dates: start: 20170217, end: 20170310

REACTIONS (4)
  - Condition aggravated [Fatal]
  - Thrombotic microangiopathy [Fatal]
  - Drug ineffective [Unknown]
  - Altered state of consciousness [Fatal]

NARRATIVE: CASE EVENT DATE: 20170309
